FAERS Safety Report 8890789 (Version 1)
Quarter: 2012Q4

REPORT INFORMATION
  Report Type: 
  Country: JP (occurrence: JP)
  Receive Date: 20121106
  Receipt Date: 20121106
  Transmission Date: 20130627
  Serious: Yes (Other)
  Sender: FDA-Public Use
  Company Number: PHHY2012JP101357

PATIENT
  Age: 77 Year
  Sex: Male

DRUGS (1)
  1. MINOCYCLINE [Suspect]
     Indication: INFECTION
     Dosage: 200 mg/day

REACTIONS (4)
  - Cerebral infarction [Unknown]
  - Pneumonia aspiration [Unknown]
  - Bone hyperpigmentation [Unknown]
  - Pigmentation disorder [Unknown]
